FAERS Safety Report 9478397 (Version 2)
Quarter: 2013Q4

REPORT INFORMATION
  Report Type: Spontaneous
  Country: DE (occurrence: DE)
  Receive Date: 20130827
  Receipt Date: 20131118
  Transmission Date: 20140711
  Serious: Yes (Life-Threatening, Hospitalization)
  Sender: FDA-Public Use
  Company Number: DE-JNJFOC-20130810855

PATIENT
  Age: 24 Year
  Sex: Female
  Weight: 83 kg

DRUGS (3)
  1. REMICADE [Suspect]
     Indication: PUSTULAR PSORIASIS
     Dosage: DURATION 7 MONTHS
     Route: 042
     Dates: start: 201208, end: 201303
  2. DAYLETTE [Suspect]
     Indication: CONTRACEPTION
     Dosage: 4 MONTH
     Route: 048
     Dates: start: 201212, end: 201304
  3. METHOTREXATE [Suspect]
     Indication: PUSTULAR PSORIASIS
     Dosage: DURATION 29 DAYS
     Route: 058
     Dates: start: 201302, end: 201303

REACTIONS (3)
  - Pulmonary embolism [Recovering/Resolving]
  - Pneumonia [Recovering/Resolving]
  - Viral infection [Unknown]
